FAERS Safety Report 16747370 (Version 1)
Quarter: 2019Q3

REPORT INFORMATION
  Report Type: Spontaneous
  Country: US (occurrence: US)
  Receive Date: 20190827
  Receipt Date: 20190827
  Transmission Date: 20191005
  Serious: Yes (Other)
  Sender: FDA-Public Use
  Company Number: US-LEADING PHARMA, LLC-2073718

PATIENT

DRUGS (3)
  1. SULINDAC. [Suspect]
     Active Substance: SULINDAC
  2. SULFASALAZINE. [Suspect]
     Active Substance: SULFASALAZINE
  3. LORAZEPAM. [Suspect]
     Active Substance: LORAZEPAM
     Indication: PRODUCT USED FOR UNKNOWN INDICATION

REACTIONS (5)
  - Blister [Unknown]
  - Oral mucosa erosion [Unknown]
  - Lip erosion [Unknown]
  - Conjunctivitis [Unknown]
  - Erythema [Unknown]
